FAERS Safety Report 21461855 (Version 1)
Quarter: 2022Q4

REPORT INFORMATION
  Report Type: Spontaneous
  Country: US (occurrence: US)
  Receive Date: 20221015
  Receipt Date: 20221015
  Transmission Date: 20230113
  Serious: No
  Sender: FDA-Public Use
  Company Number: US-AMGEN-USASP2022175883

PATIENT
  Age: 76 Year
  Sex: Female

DRUGS (2)
  1. REPATHA [Suspect]
     Active Substance: EVOLOCUMAB
     Indication: Blood cholesterol increased
     Dosage: 140 MILLIGRAM, Q2WK
     Route: 065
     Dates: start: 20220913
  2. COVID-19 vaccine [Concomitant]

REACTIONS (7)
  - Pruritus [Unknown]
  - Throat irritation [Unknown]
  - Rubber sensitivity [Unknown]
  - Blood glucose abnormal [Unknown]
  - Rhinorrhoea [Unknown]
  - Nasopharyngitis [Unknown]
  - Urticaria [Unknown]

NARRATIVE: CASE EVENT DATE: 20220901
